FAERS Safety Report 5947869-7 (Version None)
Quarter: 2008Q4

REPORT INFORMATION
  Report Type: 
  Country: None (occurrence: None)
  Receive Date: 20081110
  Receipt Date: 20081110
  Transmission Date: 20090506
  Serious: No
  Sender: FDA-Public Use
  Company Number: None

PATIENT
  Age: 74 Year
  Sex: Male
  Weight: 109.77 kg

DRUGS (1)
  1. VARENICLINE [Suspect]
     Dosage: 1 MG EVERY DAY PO
     Route: 048
     Dates: start: 20080612, end: 20080710

REACTIONS (1)
  - ANGER [None]
